FAERS Safety Report 8474940-0 (Version None)
Quarter: 2012Q2

REPORT INFORMATION
  Report Type: 
  Country: None (occurrence: None)
  Receive Date: 20120628
  Receipt Date: 20120622
  Transmission Date: 20120825
  Serious: Yes (Hospitalization)
  Sender: FDA-Public Use
  Company Number: PHEH2012US010729

PATIENT
  Sex: Female
  Weight: 120.9 kg

DRUGS (7)
  1. GLEEVEC [Suspect]
     Indication: CHRONIC MYELOID LEUKAEMIA
     Dosage: 400 MG, DAILY
     Route: 048
     Dates: start: 20090101
  2. FUROSEMIDE [Concomitant]
     Route: 048
  3. LOVASTATIN [Concomitant]
     Route: 048
  4. LEVOTHYROXINE [Concomitant]
     Route: 048
  5. GABAPENTIN [Concomitant]
     Dosage: 300 MG, UNK
     Route: 048
  6. INSULIN [Concomitant]
  7. LISINOPRIL [Concomitant]
     Route: 048

REACTIONS (17)
  - HYPERTENSION [None]
  - LEIOMYOSARCOMA [None]
  - NEOPLASM MALIGNANT [None]
  - OEDEMA PERIPHERAL [None]
  - BENIGN OVARIAN TUMOUR [None]
  - PAIN [None]
  - MYALGIA [None]
  - FLUID RETENTION [None]
  - IMPAIRED HEALING [None]
  - ENDOMETRIAL CANCER [None]
  - ASCITES [None]
  - URINARY TRACT INFECTION [None]
  - OVARIAN CYST [None]
  - TYPE 2 DIABETES MELLITUS [None]
  - ANXIETY [None]
  - OBESITY [None]
  - WEIGHT DECREASED [None]
